FAERS Safety Report 9885924 (Version 1)
Quarter: 2014Q1

REPORT INFORMATION
  Report Type: Spontaneous
  Country: US (occurrence: US)
  Receive Date: 20140210
  Receipt Date: 20140210
  Transmission Date: 20141002
  Serious: Yes (Hospitalization)
  Sender: FDA-Public Use
  Company Number: US-GLAXOSMITHKLINE-A1058896A

PATIENT
  Sex: Female

DRUGS (17)
  1. VENTOLIN [Suspect]
     Indication: CHRONIC OBSTRUCTIVE PULMONARY DISEASE
     Dosage: 2PUFF AS REQUIRED
     Route: 055
  2. ALBUTEROL NEBULIZER SOLUTION [Suspect]
     Indication: PRODUCT USED FOR UNKNOWN INDICATION
     Route: 055
  3. LIPITOR [Suspect]
     Indication: PRODUCT USED FOR UNKNOWN INDICATION
     Route: 065
  4. AUGMENTIN [Concomitant]
  5. LIPITOR [Concomitant]
  6. ALBUTEROL NEBULIZER [Concomitant]
  7. TOPROL [Concomitant]
  8. OXYCODONE [Concomitant]
  9. ACETAMINOPHEN [Concomitant]
  10. VITAMIN B12 [Concomitant]
  11. AMBIEN [Concomitant]
  12. XANAX [Concomitant]
  13. PRILOSEC [Concomitant]
  14. SYNTHROID [Concomitant]
  15. NORVASC [Concomitant]
  16. DIGOXIN [Concomitant]
  17. CELEXA [Concomitant]

REACTIONS (9)
  - Pneumonia [Not Recovered/Not Resolved]
  - Life support [Unknown]
  - Tremor [Not Recovered/Not Resolved]
  - Gait disturbance [Not Recovered/Not Resolved]
  - Hepatic cyst [Not Recovered/Not Resolved]
  - Non-cardiac chest pain [Not Recovered/Not Resolved]
  - Asthenia [Not Recovered/Not Resolved]
  - Influenza like illness [Not Recovered/Not Resolved]
  - Back pain [Not Recovered/Not Resolved]
